FAERS Safety Report 9198580 (Version 1)
Quarter: 2013Q1

REPORT INFORMATION
  Report Type: Spontaneous
  Country: US (occurrence: None)
  Receive Date: 20130327
  Receipt Date: 20130327
  Transmission Date: 20140127
  Serious: Yes (Death, Hospitalization, Other)
  Sender: FDA-Public Use
  Company Number: 2013P1003510

PATIENT
  Age: 67 Year
  Sex: Female

DRUGS (2)
  1. INFUMORPH [Suspect]
     Indication: POST LAMINECTOMY SYNDROME
  2. INFUMORPH [Suspect]
     Indication: PAIN

REACTIONS (3)
  - Acute myocardial infarction [None]
  - Coma [None]
  - Cardiac arrest [None]
